FAERS Safety Report 12756056 (Version 2)
Quarter: 2016Q4

REPORT INFORMATION
  Report Type: Spontaneous
  Country: CH (occurrence: FR)
  Receive Date: 20160916
  Receipt Date: 20161103
  Transmission Date: 20170207
  Serious: Yes (Other)
  Sender: FDA-Public Use
  Company Number: CH-LPDUSPRD-20160805

PATIENT
  Age: 50 Year
  Sex: Female
  Weight: 53 kg

DRUGS (13)
  1. UVEDOSE [Concomitant]
     Active Substance: CHOLECALCIFEROL
     Dosage: 100000 IU, 1 IN 1 M
     Route: 065
     Dates: start: 20150122
  2. VELPHORO [Suspect]
     Active Substance: FERRIC OXYHYDROXIDE
     Dosage: 1500MG DAILY; 500 MG, 3 IN 1 D
     Route: 048
     Dates: start: 20160531, end: 20160722
  3. LUTERAN [Concomitant]
     Active Substance: CHLORMADINONE ACETATE
     Dosage: 10 MG, 1 IN 1 D
     Route: 065
     Dates: start: 20150122
  4. PROGRAF [Concomitant]
     Active Substance: TACROLIMUS\TACROLIMUS ANHYDROUS
     Dosage: 0.5 MG IN AM
     Route: 048
     Dates: start: 20160404
  5. VENOFER [Suspect]
     Active Substance: IRON SUCROSE
     Dosage: DOSE UNKNOWN
     Route: 065
  6. TEMERIT [Concomitant]
     Active Substance: NEBIVOLOL
     Dosage: DOSE NOT PROVIDED
     Route: 065
  7. CARDEGIC [Concomitant]
     Active Substance: ASPIRIN LYSINE
     Dosage: 75  MG IN THE AM
     Route: 065
     Dates: start: 20150122
  8. LASILIX [Concomitant]
     Active Substance: FUROSEMIDE
     Dosage: DOSE UNKNOWN
     Route: 065
  9. MEPILEX TRANSFER (SILICON) [Concomitant]
     Dosage: IN THE AM
     Route: 065
     Dates: start: 20160102
  10. INSULIN PORCINE [Concomitant]
     Active Substance: INSULIN DEFALAN (PORCINE)
     Dosage: DOSE UNKNOWN
     Route: 065
  11. HUMALOG MIX75/25 [Concomitant]
     Active Substance: INSULIN LISPRO
     Dosage: BEFORE EVERY MEAL
     Route: 065
     Dates: start: 20150122
  12. LANTUS SOLOSTAR [Concomitant]
     Active Substance: INSULIN GLARGINE
     Dosage: 20 IU IN THEAM
     Route: 065
  13. NEXIUM [Concomitant]
     Active Substance: ESOMEPRAZOLE MAGNESIUM
     Dosage: 20 MG IN PM
     Route: 048
     Dates: start: 20150622

REACTIONS (3)
  - Dermatitis bullous [Unknown]
  - Pseudoporphyria [Unknown]
  - Porphyria non-acute [Unknown]

NARRATIVE: CASE EVENT DATE: 20160704
